FAERS Safety Report 6982903-7 (Version None)
Quarter: 2010Q3

REPORT INFORMATION
  Report Type: 
  Country: None (occurrence: None)
  Receive Date: 20100914
  Receipt Date: 20100420
  Transmission Date: 20110219
  Serious: No
  Sender: FDA-Public Use
  Company Number: US-PFIZER INC-2010050080

PATIENT
  Sex: Male
  Weight: 88 kg

DRUGS (12)
  1. LYRICA [Suspect]
     Indication: SCIATIC NERVE NEUROPATHY
     Dosage: 75 MG, 2X/DAY
     Route: 048
     Dates: start: 20100420
  2. DIOVANE [Concomitant]
     Indication: HYPERTENSION
     Dosage: 160 MG, 2X/DAY
     Route: 048
  3. ZEBETA [Concomitant]
     Indication: HYPERTENSION
     Dosage: 5 MG, DAILY
     Route: 048
  4. CADUET [Concomitant]
     Indication: BLOOD TRIGLYCERIDES INCREASED
     Dosage: 10/10 MG, DAILY
     Route: 048
  5. CADUET [Concomitant]
     Indication: HYPERTENSION
  6. HYDROCHLOROTHIAZIDE [Concomitant]
     Indication: HYPERTENSION
     Dosage: 12.5 MG, DAILY
     Dates: start: 20100101
  7. GLUCOPHAGE [Concomitant]
     Indication: DIABETES MELLITUS
     Dosage: 1000 MG, 2X/DAY
  8. HUMALOG [Concomitant]
     Indication: DIABETES MELLITUS
     Dosage: 6-20 UNITS
  9. LANTUS [Concomitant]
     Indication: DIABETES MELLITUS
     Dosage: 27-30 UNITS DAILY
  10. ACETYLSALICYLIC ACID [Concomitant]
     Dosage: 80 MG, DAILY
     Route: 048
  11. VALTREX [Concomitant]
     Indication: HERPES VIRUS INFECTION
     Dosage: 1000 MG, 2X/DAY
     Route: 048
     Dates: start: 20100401
  12. VALTREX [Concomitant]
     Indication: STOMATITIS

REACTIONS (1)
  - DYSURIA [None]
